FAERS Safety Report 5853343-9 (Version None)
Quarter: 2008Q3

REPORT INFORMATION
  Report Type: 
  Country: None (occurrence: None)
  Receive Date: 20080820
  Receipt Date: 20080811
  Transmission Date: 20090109
  Serious: Yes (Death)
  Sender: FDA-Public Use
  Company Number: MSTR-NO-0808S-0048

PATIENT
  Age: 71 Year
  Sex: Male
  Weight: 44 kg

DRUGS (4)
  1. METASTRON [Suspect]
     Indication: METASTATIC PAIN
     Dosage: SINGLE DOSE, I.V.
     Route: 019
     Dates: start: 20080703, end: 20080703
  2. CISPLATIN [Concomitant]
  3. FLUOROURACIL [Concomitant]
  4. TXT [Concomitant]

REACTIONS (2)
  - CONDITION AGGRAVATED [None]
  - HEPATIC FUNCTION ABNORMAL [None]
